FAERS Safety Report 7065389-6 (Version None)
Quarter: 2010Q4

REPORT INFORMATION
  Report Type: 
  Country: None (occurrence: None)
  Receive Date: 20101019
  Receipt Date: 20101007
  Transmission Date: 20110411
  Serious: Yes (Hospitalization, Other)
  Sender: FDA-Public Use
  Company Number: 2010AC000531

PATIENT
  Age: 53 Year
  Sex: Male

DRUGS (16)
  1. DIGOXIN [Suspect]
     Dosage: PO
     Route: 048
     Dates: start: 20040301
  2. DIGOXIN [Suspect]
     Dosage: 0.25 MG; QD; PO
     Route: 048
     Dates: start: 20080101
  3. FLOMAX [Concomitant]
  4. INSULIN [Concomitant]
  5. NORVASC [Concomitant]
  6. COREG [Concomitant]
  7. PRILOSEC [Concomitant]
  8. LIPITOR [Concomitant]
  9. IRON SUPPLEMENT [Concomitant]
  10. PLAVIX [Concomitant]
  11. POTASSIUM CHLORIDE [Concomitant]
  12. ALDACTONE [Concomitant]
  13. ALTACE [Concomitant]
  14. LOPRESSOR [Concomitant]
  15. LISINOPRIL [Concomitant]
  16. FUROSEMIDE [Concomitant]

REACTIONS (21)
  - ASTHENIA [None]
  - ATRIAL FLUTTER [None]
  - BENIGN PROSTATIC HYPERPLASIA [None]
  - DEHYDRATION [None]
  - DIZZINESS [None]
  - HAEMODIALYSIS [None]
  - HEPATIC FAILURE [None]
  - HYPERGLYCAEMIA [None]
  - HYPERKALAEMIA [None]
  - HYPEROSMOLAR STATE [None]
  - HYPOTENSION [None]
  - LEFT VENTRICULAR HYPERTROPHY [None]
  - MENTAL STATUS CHANGES [None]
  - METABOLIC ACIDOSIS [None]
  - NEPHROLITHIASIS [None]
  - OROPHARYNGEAL PAIN [None]
  - RENAL FAILURE ACUTE [None]
  - THERAPEUTIC AGENT TOXICITY [None]
  - TYPE 2 DIABETES MELLITUS [None]
  - VENTRICULAR TACHYCARDIA [None]
  - WHITE BLOOD CELL COUNT INCREASED [None]
